FAERS Safety Report 5243046-6 (Version None)
Quarter: 2007Q1

REPORT INFORMATION
  Report Type: 
  Country: None (occurrence: None)
  Receive Date: 20070220
  Receipt Date: 20070220
  Transmission Date: 20070707
  Serious: Yes (Hospitalization)
  Sender: FDA-Public Use
  Company Number: None

PATIENT
  Sex: Male
  Weight: 55 kg

DRUGS (3)
  1. CARBOPLATIN [Suspect]
     Dosage: 425.76 MG
  2. PACLITAXEL [Suspect]
     Dosage: 492 MG
  3. KEFLEX [Concomitant]

REACTIONS (2)
  - DIARRHOEA [None]
  - NEUTROPHIL COUNT DECREASED [None]
